FAERS Safety Report 9991331 (Version 1)
Quarter: 2014Q1

REPORT INFORMATION
  Report Type: Spontaneous
  Country: US (occurrence: US)
  Receive Date: 20140310
  Receipt Date: 20140310
  Transmission Date: 20141002
  Serious: No
  Sender: FDA-Public Use
  Company Number: US-ABBVIE-13P-163-1135792-00

PATIENT
  Age: 33 Year
  Sex: Female

DRUGS (3)
  1. HUMIRA [Suspect]
     Indication: PSORIATIC ARTHROPATHY
     Dates: start: 20121006, end: 201308
  2. HUMIRA [Suspect]
     Indication: PSORIASIS
     Dates: start: 201308, end: 201308
  3. HUMIRA [Suspect]
     Dates: start: 201308

REACTIONS (3)
  - Drug ineffective [Not Recovered/Not Resolved]
  - Arthralgia [Recovered/Resolved]
  - Psoriasis [Recovered/Resolved]
